FAERS Safety Report 17941501 (Version 1)
Quarter: 2020Q2

REPORT INFORMATION
  Report Type: Spontaneous
  Country: US (occurrence: US)
  Receive Date: 20200624
  Receipt Date: 20200624
  Transmission Date: 20200714
  Serious: No
  Sender: FDA-Public Use
  Company Number: None

PATIENT
  Age: 81 Year
  Sex: Female
  Weight: 56.25 kg

DRUGS (5)
  1. FENTANYL 37 MCG [Concomitant]
  2. NINLARO [Suspect]
     Active Substance: IXAZOMIB CITRATE
     Indication: PLASMA CELL MYELOMA
     Dosage: ?          OTHER FREQUENCY:DAY 1, 8, 15 OF 28;?
     Route: 048
     Dates: start: 20191031, end: 20200601
  3. OMEPRAZOLE 20 MG [Concomitant]
     Active Substance: OMEPRAZOLE
  4. DEXAMETHASONE 4 MG [Concomitant]
     Active Substance: DEXAMETHASONE
     Dates: start: 20191031
  5. ONDANSETRON. [Concomitant]
     Active Substance: ONDANSETRON
     Dates: start: 20191031

REACTIONS (1)
  - Disease progression [None]

NARRATIVE: CASE EVENT DATE: 20200624
